FAERS Safety Report 8775406 (Version 3)
Quarter: 2013Q3

REPORT INFORMATION
  Report Type: Spontaneous
  Country: US (occurrence: US)
  Receive Date: 20120910
  Receipt Date: 20130719
  Transmission Date: 20140515
  Serious: No
  Sender: FDA-Public Use
  Company Number: US-ASTRAZENECA-2012SE60910

PATIENT
  Age: 22 Year
  Sex: Female
  Weight: 53.1 kg

DRUGS (8)
  1. NEXIUM [Suspect]
     Indication: GASTROOESOPHAGEAL REFLUX DISEASE
     Route: 048
     Dates: start: 201204, end: 201206
  2. NEXIUM [Suspect]
     Indication: GASTROOESOPHAGEAL REFLUX DISEASE
     Route: 048
     Dates: start: 201209, end: 20130621
  3. PRILOSEC OTC [Suspect]
     Route: 048
  4. FANAPT [Concomitant]
     Indication: ABNORMAL BEHAVIOUR
  5. CLARITIN [Concomitant]
     Indication: SINUSITIS
  6. CLONIDINE [Concomitant]
  7. DEPAKOTE [Concomitant]
  8. LOESTRIN [Concomitant]
     Indication: CONTRACEPTION

REACTIONS (7)
  - Gastric disorder [Unknown]
  - Gastrooesophageal reflux disease [Unknown]
  - Loss of consciousness [Recovered/Resolved]
  - Diarrhoea [Recovering/Resolving]
  - Drug ineffective [Unknown]
  - Off label use [Recovered/Resolved]
  - Intentional drug misuse [Recovered/Resolved]
